FAERS Safety Report 4396899-8 (Version None)
Quarter: 2004Q3

REPORT INFORMATION
  Report Type: 
  Country: None (occurrence: None)
  Receive Date: 20040708
  Receipt Date: 20040629
  Transmission Date: 20050211
  Serious: Yes (Hospitalization)
  Sender: FDA-Public Use
  Company Number: 2004-06-2017

PATIENT
  Age: 18 Month
  Sex: Female

DRUGS (3)
  1. CELESTONE [Suspect]
     Indication: BRONCHITIS
  2. ASPEGIC ENFANT NOURRISSON  ORAL POWDER [Suspect]
     Indication: BRONCHITIS
  3. FLUIMUCIL GRANULES [Suspect]
     Indication: BRONCHITIS
     Dosage: ORAL
     Route: 048
     Dates: start: 20040115, end: 20040115

REACTIONS (3)
  - BRONCHOSPASM [None]
  - URTICARIA [None]
  - VASCULITIS [None]
